FAERS Safety Report 4524434-X (Version None)
Quarter: 2004Q4

REPORT INFORMATION
  Report Type: 
  Country: None (occurrence: None)
  Receive Date: 20041116
  Receipt Date: 20040719
  Transmission Date: 20050328
  Serious: No
  Sender: FDA-Public Use
  Company Number: PHEH2004US06759

PATIENT
  Age: 78 Year
  Sex: Female

DRUGS (6)
  1. GLEEVEC [Suspect]
     Indication: CHRONIC MYELOID LEUKAEMIA
     Dosage: 400 MG, QD, ORAL
     Route: 048
     Dates: start: 20040415
  2. CRESTOR [Concomitant]
  3. PAXIL [Concomitant]
  4. TOPROL-XL [Concomitant]
  5. PRINZIDE [Concomitant]
  6. AVANDIA [Concomitant]

REACTIONS (4)
  - ASTHENIA [None]
  - CONSTIPATION [None]
  - NAUSEA [None]
  - PROCTALGIA [None]
